FAERS Safety Report 5032122-9 (Version None)
Quarter: 2006Q2

REPORT INFORMATION
  Report Type: 
  Country: None (occurrence: None)
  Receive Date: 20060619
  Receipt Date: 20060606
  Transmission Date: 20061013
  Serious: Yes (Life-Threatening, Hospitalization)
  Sender: FDA-Public Use
  Company Number: 163-C5013-06020471

PATIENT
  Age: 67 Year
  Sex: Male
  Weight: 61.6 kg

DRUGS (8)
  1. REVLIMID [Suspect]
     Indication: NON-SMALL CELL LUNG CANCER
     Dosage: 25 MG ONCE DAILY ORAL
     Route: 048
     Dates: start: 20060123, end: 20060216
  2. MULTIVITAMIN [Concomitant]
  3. ATENOLOL [Concomitant]
  4. LIPITOR [Concomitant]
  5. PREVACID [Concomitant]
  6. ASPIRIN [Concomitant]
  7. PREDNISONE [Concomitant]
  8. OXYGEN [Concomitant]

REACTIONS (4)
  - ACUTE RESPIRATORY DISTRESS SYNDROME [None]
  - PNEUMONIA [None]
  - RESPIRATORY ACIDOSIS [None]
  - RESPIRATORY FAILURE [None]
